FAERS Safety Report 6845619-3 (Version None)
Quarter: 2010Q3

REPORT INFORMATION
  Report Type: 
  Country: None (occurrence: None)
  Receive Date: 20100715
  Receipt Date: 20070823
  Transmission Date: 20110219
  Serious: No
  Sender: FDA-Public Use
  Company Number: US-PFIZER INC-2007071591

PATIENT
  Sex: Female
  Weight: 68.9 kg

DRUGS (2)
  1. CHANTIX [Suspect]
     Indication: SMOKING CESSATION THERAPY
     Dates: start: 20070801, end: 20070801
  2. IBUPROFEN [Concomitant]
     Indication: BACK PAIN

REACTIONS (3)
  - AXILLARY PAIN [None]
  - DRUG INEFFECTIVE [None]
  - TOBACCO USER [None]
